FAERS Safety Report 12236972 (Version 1)
Quarter: 2016Q2

REPORT INFORMATION
  Report Type: Spontaneous
  Country: US (occurrence: US)
  Receive Date: 20160405
  Receipt Date: 20160405
  Transmission Date: 20160815
  Serious: Yes (Hospitalization)
  Sender: FDA-Public Use
  Company Number: US-ASTRAZENECA-2016SE33448

PATIENT
  Age: 22400 Day
  Sex: Female
  Weight: 55.8 kg

DRUGS (5)
  1. SINGULAIR [Concomitant]
     Active Substance: MONTELUKAST SODIUM
     Indication: RESPIRATION ABNORMAL
     Route: 048
     Dates: start: 2007
  2. ALLEGRA [Concomitant]
     Active Substance: FEXOFENADINE HYDROCHLORIDE
     Indication: RESPIRATION ABNORMAL
     Route: 048
     Dates: start: 2007
  3. SYMBICORT [Suspect]
     Active Substance: BUDESONIDE\FORMOTEROL FUMARATE DIHYDRATE
     Indication: CHRONIC OBSTRUCTIVE PULMONARY DISEASE
     Dosage: 160/4.5 MCG, 2 PUFFS TWICE A DAY
     Route: 055
     Dates: start: 2014
  4. AZELASTINE [Concomitant]
     Active Substance: AZELASTINE
     Indication: RESPIRATION ABNORMAL
     Dosage: 137MCG/SPRAY WITH A PRESCRIBED DOSE OF 2 SPRAYS PER NOSTRIL TWICE A DAY.
     Route: 045
     Dates: start: 2007
  5. NASONEX [Concomitant]
     Active Substance: MOMETASONE FUROATE
     Indication: RESPIRATION ABNORMAL
     Dosage: 50MCG/SPRAY WITH A PRESCRIBED DOSE OF 2 SPRAYS PER NOSTRIL ONCE A DAY.
     Route: 045
     Dates: start: 2007

REACTIONS (1)
  - Chronic obstructive pulmonary disease [Unknown]

NARRATIVE: CASE EVENT DATE: 20160319
